FAERS Safety Report 6087609-7 (Version None)
Quarter: 2009Q1

REPORT INFORMATION
  Report Type: 
  Country: None (occurrence: None)
  Receive Date: 20090223
  Receipt Date: 20090210
  Transmission Date: 20090719
  Serious: Yes (Hospitalization)
  Sender: FDA-Public Use
  Company Number: JP-ABBOTT-07P-087-0420683-00

PATIENT
  Age: 65 Year
  Sex: Male

DRUGS (6)
  1. LEUPROLIDE ACETATE [Suspect]
     Indication: PROSTATE CANCER STAGE III
     Route: 058
     Dates: start: 20070205
  2. LEUPROLIDE ACETATE [Suspect]
     Dates: start: 20061113, end: 20070115
  3. CASODEX [Concomitant]
     Indication: PROSTATE CANCER STAGE III
     Route: 048
  4. ARICEPT [Concomitant]
     Indication: DEMENTIA
     Route: 048
  5. KETAS [Concomitant]
     Indication: DEMENTIA
     Route: 048
  6. SPIRIVA [Concomitant]
     Indication: EMPHYSEMA
     Route: 055

REACTIONS (3)
  - HYPERCHOLESTEROLAEMIA [None]
  - HYPERTRIGLYCERIDAEMIA [None]
  - PNEUMONIA BACTERIAL [None]
